FAERS Safety Report 10596133 (Version 2)
Quarter: 2014Q4

REPORT INFORMATION
  Report Type: Report from Study
  Country: US (occurrence: US)
  Receive Date: 20141120
  Receipt Date: 20141120
  Transmission Date: 20150529
  Serious: Yes (Hospitalization, Other)
  Sender: FDA-Public Use
  Company Number: US-ABBVIE-10P-163-0661615-00

PATIENT
  Age: 37 Year
  Sex: Female
  Weight: 67.19 kg

DRUGS (37)
  1. TYLENOL ARTHRITIS PAIN [Concomitant]
     Active Substance: ACETAMINOPHEN
     Indication: INFLAMMATION
     Route: 048
     Dates: start: 20100310, end: 20100403
  2. RHINOCORT [Concomitant]
     Active Substance: BUDESONIDE
     Indication: UPPER RESPIRATORY TRACT INFECTION
     Dates: start: 20100602, end: 20101103
  3. TYLENOL [Concomitant]
     Active Substance: ACETAMINOPHEN
     Dosage: 7 PILLS, 1 DAY
     Route: 048
     Dates: start: 20101011, end: 20101012
  4. TYLENOL [Concomitant]
     Active Substance: ACETAMINOPHEN
     Dosage: 2 PILLS, 1 WEEK
     Route: 048
     Dates: start: 20101018, end: 20101207
  5. FLONASE [Concomitant]
     Active Substance: FLUTICASONE PROPIONATE
     Indication: PRODUCT USED FOR UNKNOWN INDICATION
     Route: 045
     Dates: start: 20101104, end: 20101207
  6. ALBUTEROL. [Concomitant]
     Active Substance: ALBUTEROL
     Indication: ASTHMA
     Route: 055
     Dates: start: 20100310, end: 20100403
  7. FERROUS SULFATE [Concomitant]
     Active Substance: FERROUS SULFATE\FERROUS SULFATE, DRIED
     Indication: PRODUCT USED FOR UNKNOWN INDICATION
     Route: 048
     Dates: start: 20100310, end: 20101207
  8. ADVAIR HFA [Concomitant]
     Active Substance: FLUTICASONE PROPIONATE\SALMETEROL XINAFOATE
     Route: 055
     Dates: start: 20101014, end: 20101025
  9. VENTOLIN [Concomitant]
     Active Substance: ALBUTEROL SULFATE
     Indication: UPPER RESPIRATORY TRACT INFECTION
     Route: 055
     Dates: start: 20100617, end: 20101013
  10. PROPOFOL. [Concomitant]
     Active Substance: PROPOFOL
     Indication: FISTULA REPAIR
  11. TYLENOL [Concomitant]
     Active Substance: ACETAMINOPHEN
     Dosage: 2 PILLS, 1 DAY
     Route: 048
     Dates: start: 20101016, end: 20101016
  12. VENTOLIN [Concomitant]
     Active Substance: ALBUTEROL SULFATE
     Indication: ASTHMA
     Route: 055
     Dates: start: 20100602, end: 20100616
  13. VENTOLIN [Concomitant]
     Active Substance: ALBUTEROL SULFATE
     Route: 055
     Dates: start: 20101014, end: 20101026
  14. OTHER CHEMICALS / EXPOSURE [Concomitant]
     Indication: FISTULA REPAIR
     Dates: start: 20100702, end: 20100702
  15. OTHER CHEMICALS / EXPOSURE [Concomitant]
     Indication: PRODUCT USED FOR UNKNOWN INDICATION
     Route: 055
     Dates: start: 20100923, end: 20101207
  16. ADVAIR HFA [Concomitant]
     Active Substance: FLUTICASONE PROPIONATE\SALMETEROL XINAFOATE
     Indication: ASTHMA
     Route: 048
     Dates: start: 20100310, end: 20100403
  17. TYLENOL EXTRA STRENGTH [Concomitant]
     Active Substance: ACETAMINOPHEN
     Indication: HEADACHE
     Dosage: 2 TOTAL
     Route: 048
     Dates: start: 20100403, end: 20100410
  18. TYLENOL ARTHRITIS PAIN [Concomitant]
     Active Substance: ACETAMINOPHEN
     Indication: ARTHRALGIA
  19. TYLENOL [Concomitant]
     Active Substance: ACETAMINOPHEN
     Indication: BACK PAIN
     Route: 048
     Dates: start: 20100421
  20. LIDODERM [Concomitant]
     Active Substance: LIDOCAINE
     Indication: PAIN
     Dosage: PATCH:  FACE, SCALP 2.5 HOURS
     Route: 061
     Dates: start: 20101201, end: 20101201
  21. AMBIEN [Concomitant]
     Active Substance: ZOLPIDEM TARTRATE
     Indication: INSOMNIA
     Dosage: 5 TOTAL
     Route: 048
     Dates: start: 20100313, end: 20100403
  22. ADVAIR HFA [Concomitant]
     Active Substance: FLUTICASONE PROPIONATE\SALMETEROL XINAFOATE
     Route: 055
     Dates: start: 20101026, end: 20101207
  23. ZANTAC [Concomitant]
     Active Substance: RANITIDINE HYDROCHLORIDE
     Indication: GASTROOESOPHAGEAL REFLUX DISEASE
     Route: 048
     Dates: start: 20100802, end: 20101207
  24. OTHER CHEMICALS / EXPOSURE [Concomitant]
     Indication: PRODUCT USED FOR UNKNOWN INDICATION
     Dates: start: 20100626, end: 20100626
  25. PRENATAL [Concomitant]
     Active Substance: VITAMINS
     Indication: PRODUCT USED FOR UNKNOWN INDICATION
     Route: 048
     Dates: start: 20100310, end: 20101207
  26. ANTIBIOTICS [Concomitant]
     Active Substance: UNSPECIFIED INGREDIENT
     Indication: UPPER RESPIRATORY TRACT INFECTION
     Route: 048
     Dates: start: 20100602, end: 20100611
  27. ZANTAC [Concomitant]
     Active Substance: RANITIDINE HYDROCHLORIDE
     Indication: DYSPEPSIA
     Route: 048
     Dates: start: 20100706, end: 20100725
  28. OTHER CHEMICALS / EXPOSURE [Concomitant]
     Indication: PRODUCT USED FOR UNKNOWN INDICATION
     Dosage: 24  HOURS, 1 DAY
     Route: 055
     Dates: start: 20100923, end: 20100924
  29. HUMIRA [Suspect]
     Active Substance: ADALIMUMAB
     Indication: CROHN^S DISEASE
     Route: 058
     Dates: start: 20100310, end: 20101012
  30. FISH OIL [Concomitant]
     Active Substance: FISH OIL
     Indication: SUPPLEMENTATION THERAPY
     Route: 048
     Dates: start: 20100401, end: 20101207
  31. ALBUTEROL. [Concomitant]
     Active Substance: ALBUTEROL
     Dates: start: 20100702, end: 20100702
  32. ZYRTEC [Concomitant]
     Active Substance: CETIRIZINE HYDROCHLORIDE
     Indication: HYPERSENSITIVITY
     Route: 048
     Dates: start: 20100602, end: 20101207
  33. SINGULAIR [Concomitant]
     Active Substance: MONTELUKAST SODIUM
     Indication: ASTHMA
     Dosage: 2.5 PER WEEK
     Route: 048
     Dates: start: 20100706, end: 20100802
  34. SINGULAIR [Concomitant]
     Active Substance: MONTELUKAST SODIUM
     Indication: UPPER RESPIRATORY TRACT INFECTION
     Route: 048
     Dates: start: 20100802, end: 20101207
  35. PROPOFOL. [Concomitant]
     Active Substance: PROPOFOL
     Indication: ANAESTHESIA
     Route: 042
     Dates: start: 20100702, end: 20100702
  36. TYLENOL [Concomitant]
     Active Substance: ACETAMINOPHEN
     Indication: MIGRAINE
     Dosage: 7 PILLS, 1 DAY
     Route: 048
     Dates: start: 20101004, end: 20101005
  37. OTHER CHEMICALS / EXPOSURE [Concomitant]
     Indication: EXPOSURE TO COMMUNICABLE DISEASE
     Dates: start: 20100415, end: 20100424

REACTIONS (7)
  - Fistula [Recovered/Resolved]
  - Fistula [Unknown]
  - Vomiting [Recovered/Resolved]
  - Abdominal discomfort [Recovered/Resolved]
  - Haemorrhage [Recovered/Resolved]
  - Respiratory tract infection [Recovered/Resolved]
  - Gastroenteritis viral [Recovered/Resolved]

NARRATIVE: CASE EVENT DATE: 20100702
